FAERS Safety Report 4267254-6 (Version None)
Quarter: 2004Q1

REPORT INFORMATION
  Report Type: 
  Country: None (occurrence: None)
  Receive Date: 20040107
  Receipt Date: 20031230
  Transmission Date: 20041129
  Serious: Yes (Life-Threatening, Other)
  Sender: FDA-Public Use
  Company Number: HQWYE961330DEC03

PATIENT
  Age: 47 Year
  Sex: Male

DRUGS (3)
  1. CORDARONE [Suspect]
     Dates: end: 20031009
  2. DIGOXIN [Suspect]
     Dosage: LONGSTANDING
  3. LASIX [Suspect]
     Dosage: LONGSTANDING

REACTIONS (4)
  - DRUG INTERACTION [None]
  - HYPOKALAEMIA [None]
  - SINUS BRADYCARDIA [None]
  - TORSADE DE POINTES [None]
